FAERS Safety Report 9056559 (Version 2)
Quarter: 2013Q2

REPORT INFORMATION
  Report Type: Spontaneous
  Country: SE (occurrence: SE)
  Receive Date: 20130204
  Receipt Date: 20130418
  Transmission Date: 20140414
  Serious: Yes (Death)
  Sender: FDA-Public Use
  Company Number: SE-GLAXOSMITHKLINE-B0864388A

PATIENT
  Age: 76 Year
  Sex: Male

DRUGS (4)
  1. VOTRIENT [Suspect]
     Indication: RENAL CANCER METASTATIC
     Dosage: 600MG PER DAY
     Route: 065
     Dates: start: 20130103, end: 20130108
  2. GABAPENTIN [Concomitant]
     Indication: INTERVERTEBRAL DISC PROTRUSION
     Dosage: 300MG ALTERNATE DAYS
     Dates: start: 20121221, end: 20121231
  3. DOLCONTIN [Concomitant]
     Indication: INTERVERTEBRAL DISC PROTRUSION
     Dosage: 20MG PER DAY
     Dates: start: 20121219, end: 20121231
  4. DUROGESIC [Concomitant]
     Dates: start: 20121231, end: 20130112

REACTIONS (3)
  - Alanine aminotransferase increased [Fatal]
  - Serum ferritin increased [Fatal]
  - Decreased appetite [Unknown]
